FAERS Safety Report 8580130-3 (Version None)
Quarter: 2012Q3

REPORT INFORMATION
  Report Type: 
  Country: None (occurrence: None)
  Receive Date: 20120808
  Receipt Date: 20120802
  Transmission Date: 20120928
  Serious: Yes (Other)
  Sender: FDA-Public Use
  Company Number: US-PFIZER INC-2012140083

PATIENT
  Age: 48 Year
  Sex: Male

DRUGS (2)
  1. LATANOPROST [Suspect]
     Indication: GLAUCOMA
     Dosage: UNK, AT NIGHT
     Route: 047
  2. COSOPT [Concomitant]
     Indication: GLAUCOMA
     Dosage: UNK, 2X/DAY

REACTIONS (3)
  - RETINAL DETACHMENT [None]
  - VISUAL IMPAIRMENT [None]
  - CATARACT [None]
